FAERS Safety Report 24584058 (Version 1)
Quarter: 2024Q4

REPORT INFORMATION
  Report Type: Spontaneous
  Country: US (occurrence: None)
  Receive Date: 20241105
  Receipt Date: 20241105
  Transmission Date: 20250115
  Serious: Yes (Death)
  Sender: Public
  Company Number: None

PATIENT
  Age: 42 Year
  Sex: Male

DRUGS (10)
  1. SOMAVERT [Suspect]
     Active Substance: PEGVISOMANT
     Indication: Acromegaly
     Dosage: 10MG QD : INJECTABLE?
     Route: 050
     Dates: start: 20240724, end: 20241007
  2. COLCHICINE [Concomitant]
     Active Substance: COLCHICINE
  3. CLONIDINE [Concomitant]
     Active Substance: CLONIDINE
  4. LOSARTAN [Concomitant]
     Active Substance: LOSARTAN
  5. NIFEDIPINE [Concomitant]
     Active Substance: NIFEDIPINE
  6. ASPIRIN [Concomitant]
     Active Substance: ASPIRIN
  7. INSULIN GLARGINE [Concomitant]
     Active Substance: INSULIN GLARGINE
  8. JADINCE [Concomitant]
  9. ATORVSTTIN [Concomitant]
  10. BUMETNIDE [Concomitant]

REACTIONS (1)
  - Death [None]

NARRATIVE: CASE EVENT DATE: 20241007
